FAERS Safety Report 15604489 (Version 1)
Quarter: 2018Q4

REPORT INFORMATION
  Report Type: Spontaneous
  Country: HR (occurrence: HR)
  Receive Date: 20181110
  Receipt Date: 20181110
  Transmission Date: 20190205
  Serious: Yes (Hospitalization, Other)
  Sender: FDA-Public Use
  Company Number: PHHY2018HR148008

PATIENT
  Age: 50 Year
  Sex: Female

DRUGS (3)
  1. TIANEPTINE [Suspect]
     Active Substance: TIANEPTINE
     Indication: SUICIDE ATTEMPT
     Dosage: 15 DF (12.5 MG TABLETS)
     Route: 065
  2. AMITRIPTYLINE [Suspect]
     Active Substance: AMITRIPTYLINE
     Indication: PRODUCT USED FOR UNKNOWN INDICATION
     Dosage: UNK (UNKNOWN AND INCREASED DOSES)
     Route: 065
  3. SERTRALINE [Suspect]
     Active Substance: SERTRALINE HYDROCHLORIDE
     Indication: PRODUCT USED FOR UNKNOWN INDICATION
     Dosage: 6 DF, 1X
     Route: 065

REACTIONS (19)
  - Depression [Unknown]
  - Psychomotor hyperactivity [Unknown]
  - Anxiety [Unknown]
  - Logorrhoea [Unknown]
  - Overdose [Unknown]
  - Dry mouth [Unknown]
  - Tremor [Unknown]
  - Pyrexia [Unknown]
  - Hyperhidrosis [Unknown]
  - Affect lability [Unknown]
  - Aggression [Unknown]
  - Hyperreflexia [Unknown]
  - Suicide attempt [Unknown]
  - Hyperkinesia [Unknown]
  - Coordination abnormal [Unknown]
  - Bipolar disorder [Unknown]
  - Fear [Unknown]
  - Tension [Unknown]
  - Serotonin syndrome [Unknown]
